FAERS Safety Report 4755570-0 (Version None)
Quarter: 2005Q3

REPORT INFORMATION
  Report Type: 
  Country: None (occurrence: None)
  Receive Date: 20050830
  Receipt Date: 20050519
  Transmission Date: 20060218
  Serious: No
  Sender: FDA-Public Use
  Company Number: US-BRISTOL-MYERS SQUIBB COMPANY-12975470

PATIENT
  Age: 56 Year
  Sex: Female

DRUGS (10)
  1. ABILIFY [Suspect]
     Indication: MAJOR DEPRESSION
     Route: 048
     Dates: start: 20050512
  2. ABILIFY [Suspect]
     Indication: SCHIZOPHRENIA, RESIDUAL TYPE
     Route: 048
     Dates: start: 20050512
  3. ABILIFY [Suspect]
     Indication: PERSONALITY DISORDER
     Route: 048
     Dates: start: 20050512
  4. ATIVAN [Concomitant]
  5. BUSPAR [Concomitant]
     Dosage: FOR YEARS.
  6. COGENTIN [Concomitant]
  7. LEXAPRO [Concomitant]
  8. MULTI-VITAMIN [Concomitant]
  9. NEURONTIN [Concomitant]
  10. REMERON [Concomitant]

REACTIONS (2)
  - PRURITUS [None]
  - RASH [None]
